FAERS Safety Report 4565265-4 (Version None)
Quarter: 2005Q1

REPORT INFORMATION
  Report Type: 
  Country: None (occurrence: None)
  Receive Date: 20050127
  Receipt Date: 20050127
  Transmission Date: 20050727
  Serious: Yes (Death, Life-Threatening, Hospitalization)
  Sender: FDA-Public Use
  Company Number: None

PATIENT
  Age: 65 Year
  Sex: Male
  Weight: 54.9 kg

DRUGS (20)
  1. METHOTREXATE [Suspect]
     Indication: CHRONIC MYELOID LEUKAEMIA
     Dosage: 12MG, ONETIME, INTRATRA
     Route: 037
     Dates: start: 20040910, end: 20040910
  2. CALCIUM GLUCONATE [Concomitant]
  3. DEXTROSE 50% [Concomitant]
  4. REGULAR INSULIN [Concomitant]
  5. MAGNESIUM SULFATE [Concomitant]
  6. HYDROXYUREA [Concomitant]
  7. MORPHINE SULFATE [Concomitant]
  8. ALLOPURINOL [Concomitant]
  9. FENTANYL [Concomitant]
  10. ACETAMINOPHEN [Concomitant]
  11. U/D SODIUM BICARBONATE [Concomitant]
  12. LORATADINE [Concomitant]
  13. CITALOPRAM [Concomitant]
  14. METOCLOPRAMIDE [Concomitant]
  15. EPINEPHRINE [Concomitant]
  16. PANTOPRAZOLE SODIUM [Concomitant]
  17. NOREPINEPHRINE [Concomitant]
  18. HYDROCORTISONE [Concomitant]
  19. ZOSYN [Concomitant]
  20. ONDANSETRON [Concomitant]

REACTIONS (1)
  - DISSEMINATED INTRAVASCULAR COAGULATION [None]
